FAERS Safety Report 14350751 (Version 1)
Quarter: 2018Q1

REPORT INFORMATION
  Report Type: Spontaneous
  Country: US (occurrence: US)
  Receive Date: 20180104
  Receipt Date: 20180104
  Transmission Date: 20180509
  Serious: No
  Sender: FDA-Public Use
  Company Number: US-GLAXOSMITHKLINE-US2018000332

PATIENT
  Sex: Male

DRUGS (1)
  1. FLOVENT DISKUS [Suspect]
     Active Substance: FLUTICASONE PROPIONATE
     Indication: PULMONARY FIBROSIS
     Dosage: 1 PUFF(S), BID

REACTIONS (3)
  - Wrong technique in product usage process [Recovered/Resolved]
  - Product use in unapproved indication [Unknown]
  - Drug dispensing error [Unknown]
